FAERS Safety Report 5520089-6 (Version None)
Quarter: 2007Q4

REPORT INFORMATION
  Report Type: 
  Country: None (occurrence: None)
  Receive Date: 20071116
  Receipt Date: 20071107
  Transmission Date: 20080405
  Serious: Yes (Hospitalization)
  Sender: FDA-Public Use
  Company Number: US-SHR-US-2007-002029

PATIENT
  Age: 22 Year
  Sex: Female

DRUGS (5)
  1. BETASERON [Suspect]
     Dosage: 2 MIU, EVERY 2D
     Route: 058
     Dates: start: 20070118, end: 20070101
  2. BETASERON [Suspect]
     Dosage: 4 MIU, EVERY 2D, TITRATION
     Route: 058
     Dates: start: 20070101, end: 20070101
  3. BETASERON [Suspect]
     Dosage: 6 MIU, EVERY 2D, TITRATION
     Route: 058
     Dates: start: 20070101, end: 20070101
  4. BETASERON [Suspect]
     Dosage: 8 MIU, EVERY 2D
     Route: 058
     Dates: start: 20070101
  5. VICODIN [Concomitant]

REACTIONS (5)
  - ASTHENIA [None]
  - LOSS OF CONSCIOUSNESS [None]
  - MULTIPLE SCLEROSIS [None]
  - PRURITUS [None]
  - PULMONARY EMBOLISM [None]
